FAERS Safety Report 8251839-6 (Version None)
Quarter: 2012Q2

REPORT INFORMATION
  Report Type: 
  Country: None (occurrence: None)
  Receive Date: 20120402
  Receipt Date: 20120329
  Transmission Date: 20120825
  Serious: Yes (Life-Threatening, Hospitalization, Other)
  Sender: FDA-Public Use
  Company Number: JP-ABBOTT-11P-087-0734227-00

PATIENT
  Sex: Male
  Weight: 48 kg

DRUGS (9)
  1. FERROUS FUMARATE [Concomitant]
     Indication: CROHN'S DISEASE
     Route: 048
  2. MESALAMINE [Concomitant]
     Indication: CROHN'S DISEASE
     Dosage: 6000MG DAILY, 3000MG 2 IN 1 DAY
     Route: 048
     Dates: start: 19930301
  3. LOPERAMIDE HCL [Concomitant]
     Indication: PRODUCT USED FOR UNKNOWN INDICATION
     Route: 048
  4. HUMIRA [Suspect]
     Dates: start: 20110706, end: 20110929
  5. CLOSTRIDIUM BUTYRICUM [Concomitant]
     Dosage: DAILY DOSE: 4 DF, 2 DF IN 1 DAY
  6. HUMIRA [Suspect]
     Indication: CROHN'S DISEASE
     Dosage: (160MG)
     Route: 058
     Dates: start: 20110419, end: 20110419
  7. HUMIRA [Suspect]
     Dosage: (80 MG)
     Dates: start: 20110502, end: 20110502
  8. CLOSTRIDIUM BUTYRICUM [Concomitant]
     Indication: CROHN'S DISEASE
     Route: 048
     Dates: start: 19930301
  9. HUMIRA [Suspect]
     Dates: start: 20110517, end: 20110614

REACTIONS (4)
  - INFECTIOUS PERITONITIS [None]
  - ABDOMINAL PAIN [None]
  - HEPATIC FUNCTION ABNORMAL [None]
  - INTESTINAL PERFORATION [None]
